FAERS Safety Report 7099706-8 (Version None)
Quarter: 2010Q4

REPORT INFORMATION
  Report Type: 
  Country: None (occurrence: None)
  Receive Date: 20101104
  Receipt Date: 20101025
  Transmission Date: 20110411
  Serious: Yes (Other)
  Sender: FDA-Public Use
  Company Number: 734912

PATIENT
  Age: 33 Year
  Sex: Male
  Weight: 90.91 kg

DRUGS (1)
  1. LIDOCAINE HYDROCHLORIDE 2% W/ EPINEPHRINE INJ [Suspect]
     Indication: NERVE BLOCK
     Dosage: 9 ML, ONCE
     Dates: start: 20101019

REACTIONS (5)
  - DISORIENTATION [None]
  - FEELING ABNORMAL [None]
  - HEART RATE INCREASED [None]
  - HYPERHIDROSIS [None]
  - HYPERTENSION [None]
